FAERS Safety Report 20684252 (Version 15)
Quarter: 2025Q1

REPORT INFORMATION
  Report Type: Report from Study
  Country: US (occurrence: US)
  Receive Date: 20220407
  Receipt Date: 20250212
  Transmission Date: 20250409
  Serious: Yes (Hospitalization, Other)
  Sender: TAKEDA
  Company Number: US-TAKEDA-2022TUS021822

PATIENT
  Age: 65 Year
  Sex: Female
  Weight: 65 kg

DRUGS (24)
  1. HUMAN IMMUNOGLOBULIN G [Suspect]
     Active Substance: HUMAN IMMUNOGLOBULIN G
     Indication: Immunodeficiency common variable
     Dosage: 12 GRAM, Q4WEEKS
     Dates: start: 20190410
  2. HUMAN IMMUNOGLOBULIN G [Suspect]
     Active Substance: HUMAN IMMUNOGLOBULIN G
     Indication: Pulmonary hypertension
     Dosage: 12 GRAM, Q2WEEKS
  3. HUMAN IMMUNOGLOBULIN G [Suspect]
     Active Substance: HUMAN IMMUNOGLOBULIN G
     Dosage: 12 GRAM, Q2WEEKS
  4. HUMAN IMMUNOGLOBULIN G [Suspect]
     Active Substance: HUMAN IMMUNOGLOBULIN G
     Dosage: 10 GRAM, 1/WEEK
  5. HUMAN IMMUNOGLOBULIN G [Suspect]
     Active Substance: HUMAN IMMUNOGLOBULIN G
     Dosage: 12 GRAM, Q2WEEKS
  6. VITAMIN D3 [Concomitant]
     Active Substance: CHOLECALCIFEROL
  7. VALACYCLOVIR [Concomitant]
     Active Substance: VALACYCLOVIR HYDROCHLORIDE
  8. FISH OIL [Concomitant]
     Active Substance: FISH OIL
  9. VITAMIN B COMPLEX [Concomitant]
     Active Substance: CYANOCOBALAMIN\DEXPANTHENOL\NIACINAMIDE\PYRIDOXINE HYDROCHLORIDE\RIBOFLAVIN 5^-PHOSPHATE SODIUM\THIA
  10. LORAZEPAM [Concomitant]
     Active Substance: LORAZEPAM
  11. LAMICTAL [Concomitant]
     Active Substance: LAMOTRIGINE
  12. SEROQUEL [Concomitant]
     Active Substance: QUETIAPINE FUMARATE
  13. PAROXETINE HYDROCHLORIDE [Concomitant]
     Active Substance: PAROXETINE HYDROCHLORIDE
  14. DIPHENHYDRAMINE HYDROCHLORIDE [Concomitant]
     Active Substance: DIPHENHYDRAMINE HYDROCHLORIDE
  15. IRON [Concomitant]
     Active Substance: IRON
  16. ACETAMINOPHEN [Concomitant]
     Active Substance: ACETAMINOPHEN
  17. LIDOCAINE [Concomitant]
     Active Substance: LIDOCAINE
  18. EPINEPHRINE [Concomitant]
     Active Substance: EPINEPHRINE
  19. CRANBERRY [Concomitant]
     Active Substance: CRANBERRY
  20. Lmx [Concomitant]
  21. LAMOTRIGINE [Concomitant]
     Active Substance: LAMOTRIGINE
  22. CEROVITE SENIOR [Concomitant]
  23. AMOXICILLIN [Concomitant]
     Active Substance: AMOXICILLIN
  24. MINERALS\VITAMINS [Concomitant]
     Active Substance: MINERALS\VITAMINS

REACTIONS (31)
  - Renal haemorrhage [Unknown]
  - Tooth disorder [Unknown]
  - Pneumonia bacterial [Unknown]
  - Escherichia infection [Unknown]
  - Pneumonia fungal [Unknown]
  - Pneumonia [Unknown]
  - Pulmonary thrombosis [Unknown]
  - Peripheral swelling [Recovered/Resolved]
  - Urinary tract infection [Unknown]
  - Bacterial vaginosis [Unknown]
  - Food allergy [Unknown]
  - Dermatitis acneiform [Unknown]
  - Acrochordon [Unknown]
  - Weight decreased [Unknown]
  - Insurance issue [Unknown]
  - Device breakage [Unknown]
  - Product use issue [Unknown]
  - Product dose omission issue [Unknown]
  - Incorrect dose administered by device [Unknown]
  - Inappropriate schedule of product administration [Unknown]
  - Product use in unapproved indication [Unknown]
  - Infusion site haemorrhage [Unknown]
  - Asthenia [Unknown]
  - Infusion site extravasation [Unknown]
  - Illness [Unknown]
  - Cough [Not Recovered/Not Resolved]
  - Rash [Unknown]
  - Infusion site swelling [Unknown]
  - Headache [Unknown]
  - Bronchitis [Unknown]
  - Erythema [Unknown]

NARRATIVE: CASE EVENT DATE: 20200522
